FAERS Safety Report 7315510-7 (Version None)
Quarter: 2011Q1

REPORT INFORMATION
  Report Type: 
  Country: None (occurrence: None)
  Receive Date: 20110119
  Receipt Date: 20100630
  Transmission Date: 20110831
  Serious: Yes (Other)
  Sender: FDA-Public Use
  Company Number: A-NJ2010-37769

PATIENT
  Age: 76 Year
  Sex: Female
  Weight: 87.5 kg

DRUGS (26)
  1. AMBIEN [Concomitant]
  2. POTASSIUM CHLORIDE [Concomitant]
  3. TYLENOL ARTHRITIS EXTENDED RELIEF (PARACETAMOL) [Concomitant]
  4. HYDROCHLOROTHIAZIDE [Concomitant]
  5. CALCIUM (CALCIUM) [Concomitant]
  6. LUNESTA [Concomitant]
  7. TRACLEER [Suspect]
     Indication: PULMONARY ARTERIAL HYPERTENSION
     Dosage: 125 MG, BID, ORAL, 62.5 MG, BID, ORAL, 62.5 MG, BID, ORAL
     Route: 048
     Dates: start: 20061227, end: 20070320
  8. TRACLEER [Suspect]
     Indication: PULMONARY ARTERIAL HYPERTENSION
     Dosage: 125 MG, BID, ORAL, 62.5 MG, BID, ORAL, 62.5 MG, BID, ORAL
     Route: 048
     Dates: start: 20100623, end: 20100715
  9. TRACLEER [Suspect]
     Indication: PULMONARY ARTERIAL HYPERTENSION
     Dosage: 125 MG, BID, ORAL, 62.5 MG, BID, ORAL, 62.5 MG, BID, ORAL
     Route: 048
     Dates: start: 20070321, end: 20100622
  10. TESSALON [Concomitant]
  11. FISH OIL (FISH OIL) [Concomitant]
  12. LIPITOR [Concomitant]
  13. TYLENOL P;M EXTRA STRENGTH (DIPHENHYDRAMINE HYDROCHLORIDE, PARACETAMOL [Concomitant]
  14. WELLBUTRIN XL [Concomitant]
  15. CYANOCOBALAMIN [Concomitant]
  16. SPIRIVA [Concomitant]
  17. LASIX [Concomitant]
  18. ASPIRIN (ACETYLSALICYLIC ACID) [Concomitant]
  19. FORMOTEROL (FORMOTEROL) [Concomitant]
  20. REVATIO [Concomitant]
  21. SINGULAIR [Concomitant]
  22. PROZAC [Concomitant]
  23. LORTAB [Concomitant]
  24. LEVAQUIN [Concomitant]
  25. OMEPRAZOLE [Concomitant]
  26. COENZYME Q10 [Concomitant]

REACTIONS (3)
  - TRANSFUSION [None]
  - HAEMOGLOBIN DECREASED [None]
  - ANAEMIA [None]
